FAERS Safety Report 5273745-1 (Version None)
Quarter: 2007Q1

REPORT INFORMATION
  Report Type: 
  Country: None (occurrence: None)
  Receive Date: 20070323
  Receipt Date: 20070322
  Transmission Date: 20070707
  Serious: Yes (Death, Other)
  Sender: FDA-Public Use
  Company Number: US-BRISTOL-MYERS SQUIBB COMPANY-13723051

PATIENT
  Age: 19 Year
  Sex: Male

DRUGS (4)
  1. CYTOXAN [Suspect]
     Indication: METASTATIC NEOPLASM
     Dates: start: 20060204, end: 20060901
  2. ETOPOSIDE [Suspect]
     Indication: METASTATIC NEOPLASM
     Dates: start: 20060204, end: 20060901
  3. THALOMID [Suspect]
     Indication: METASTATIC NEOPLASM
     Route: 048
     Dates: start: 20060203, end: 20060901
  4. CELEBREX [Suspect]
     Indication: METASTATIC NEOPLASM
     Dates: start: 20060204, end: 20060901

REACTIONS (2)
  - MALIGNANT NEOPLASM PROGRESSION [None]
  - NEUROPATHY PERIPHERAL [None]
